FAERS Safety Report 8228085-5 (Version None)
Quarter: 2012Q1

REPORT INFORMATION
  Report Type: 
  Country: None (occurrence: None)
  Receive Date: 20120322
  Receipt Date: 20110503
  Transmission Date: 20120608
  Serious: No
  Sender: FDA-Public Use
  Company Number: US-BAUSCH-2011BL002873

PATIENT
  Age: 68 Year
  Sex: Female

DRUGS (1)
  1. NEOMYCIN + POLYMYXIN B SULFATES + GRAMICIDIN [Suspect]
     Indication: CONJUNCTIVITIS
     Route: 047
     Dates: start: 20110502

REACTIONS (3)
  - INSTILLATION SITE PAIN [None]
  - DRY EYE [None]
  - ERYTHEMA [None]
